FAERS Safety Report 8476199-7 (Version None)
Quarter: 2012Q2

REPORT INFORMATION
  Report Type: 
  Country: None (occurrence: None)
  Receive Date: 20120628
  Receipt Date: 20120625
  Transmission Date: 20120825
  Serious: Yes (Hospitalization)
  Sender: FDA-Public Use
  Company Number: US-PFIZER INC-K201001015

PATIENT
  Sex: Male

DRUGS (1)
  1. EMBEDA [Suspect]
     Indication: BACK PAIN
     Dosage: 640 MG, SINGLE
     Dates: start: 20100805, end: 20100805

REACTIONS (5)
  - COMA [None]
  - INTENTIONAL OVERDOSE [None]
  - RESPIRATORY DEPRESSION [None]
  - DRUG ABUSE [None]
  - CYANOSIS [None]
